FAERS Safety Report 7605264-9 (Version None)
Quarter: 2011Q3

REPORT INFORMATION
  Report Type: 
  Country: None (occurrence: None)
  Receive Date: 20110713
  Receipt Date: 20110711
  Transmission Date: 20111222
  Serious: Yes (Hospitalization)
  Sender: FDA-Public Use
  Company Number: IL-AMGEN-ISRSP2011031210

PATIENT
  Sex: Male
  Weight: 70 kg

DRUGS (4)
  1. NPLATE [Suspect]
     Indication: IDIOPATHIC THROMBOCYTOPENIC PURPURA
     Dosage: 1 A?G/KG, UNK
     Dates: end: 20110529
  2. NORVASC [Concomitant]
  3. OMEPRADEX [Concomitant]
  4. RAMIPRIL [Concomitant]
     Dosage: UNK

REACTIONS (4)
  - SEPSIS [None]
  - PYREXIA [None]
  - CONFUSIONAL STATE [None]
  - DEMENTIA [None]
